FAERS Safety Report 9341502 (Version 2)
Quarter: 2013Q3

REPORT INFORMATION
  Report Type: Spontaneous
  Country: US (occurrence: US)
  Receive Date: 20130611
  Receipt Date: 20130809
  Transmission Date: 20140515
  Serious: Yes (Hospitalization)
  Sender: FDA-Public Use
  Company Number: US-JNJFOC-20130600200

PATIENT
  Age: 49 Year
  Sex: Female
  Weight: 65.77 kg

DRUGS (6)
  1. XARELTO [Suspect]
     Indication: PULMONARY EMBOLISM
     Route: 048
     Dates: start: 20130308, end: 20130409
  2. IRON [Concomitant]
     Indication: ANAEMIA
     Route: 065
  3. MAGNESIUM [Concomitant]
     Indication: OSTEOPENIA
     Route: 065
  4. MSM [Concomitant]
     Indication: ARTHRALGIA
     Route: 065
  5. VITAMIN D [Concomitant]
     Indication: OSTEOPENIA
     Route: 065
  6. SALMON CALCITONIN [Concomitant]
     Indication: OSTEOPENIA
     Route: 065

REACTIONS (2)
  - Pulmonary embolism [Recovering/Resolving]
  - Gastrooesophageal reflux disease [Unknown]
